FAERS Safety Report 4932918-5 (Version None)
Quarter: 2006Q1

REPORT INFORMATION
  Report Type: 
  Country: None (occurrence: None)
  Receive Date: 20060306
  Receipt Date: 20060221
  Transmission Date: 20060701
  Serious: Yes (Hospitalization)
  Sender: FDA-Public Use
  Company Number: US-AVENTIS-200611689US

PATIENT

DRUGS (2)
  1. KETEK [Suspect]
     Dosage: DOSE: UNK
     Route: 048
  2. TACROLIMUS [Suspect]
     Dosage: DOSE: UNK

REACTIONS (1)
  - PYREXIA [None]
